FAERS Safety Report 21028539 (Version 1)
Quarter: 2022Q2

REPORT INFORMATION
  Report Type: Spontaneous
  Country: US (occurrence: None)
  Receive Date: 20220630
  Receipt Date: 20220630
  Transmission Date: 20220721
  Serious: No
  Sender: FDA-Public Use
  Company Number: None

PATIENT
  Age: 13 Year
  Sex: Female
  Weight: 61.2 kg

DRUGS (2)
  1. PAXLOVID [Suspect]
     Active Substance: NIRMATRELVIR\RITONAVIR
     Indication: COVID-19
     Dosage: FREQUENCY : TWICE A DAY;?
     Route: 048
     Dates: start: 20220609, end: 20220612
  2. NIRMATRELVIR/RITONAVIR -Paxlovid [Concomitant]
     Dates: start: 20220609, end: 20220612

REACTIONS (2)
  - Uterine spasm [None]
  - Abdominal pain [None]

NARRATIVE: CASE EVENT DATE: 20220611
